FAERS Safety Report 9669739 (Version 2)
Quarter: 2013Q4

REPORT INFORMATION
  Report Type: Spontaneous
  Country: CA (occurrence: CA)
  Receive Date: 20131105
  Receipt Date: 20131121
  Transmission Date: 20140711
  Serious: Yes (Death, Hospitalization, Other)
  Sender: FDA-Public Use
  Company Number: CA-BAXTER-2013BAX042790

PATIENT
  Age: 66 Year
  Sex: Male

DRUGS (7)
  1. DIANEAL PD4 SOLUTION WITH 1.5% DEXTROSE AND 2.5 MEQ/L CALCIUM [Suspect]
     Indication: PERITONEAL DIALYSIS
     Dosage: 3 BAGS
     Route: 033
     Dates: start: 201205, end: 20131011
  2. DIANEAL PD4 SOLUTION WITH 1.5% DEXTROSE AND 2.5 MEQ/L CALCIUM [Suspect]
     Indication: RENAL FAILURE
     Route: 033
     Dates: start: 201309, end: 20131011
  3. DIANEAL PD4 SOLUTION WITH 1.5% DEXTROSE AND 2.5 MEQ/L CALCIUM [Suspect]
     Indication: PERITONEAL DIALYSIS
  4. EXTRANEAL [Suspect]
     Indication: PERITONEAL DIALYSIS
     Dosage: 1 BAG
     Route: 033
     Dates: start: 201205, end: 201309
  5. EXTRANEAL [Suspect]
     Indication: RENAL FAILURE
  6. EXTRANEAL [Suspect]
     Indication: PERITONEAL DIALYSIS
  7. CALCIUM [Concomitant]
     Indication: SUPPLEMENTATION THERAPY
     Route: 065

REACTIONS (7)
  - Therapy cessation [Fatal]
  - Infection [Fatal]
  - Sepsis [Unknown]
  - Calciphylaxis [Unknown]
  - Delirium [Unknown]
  - Pain [Unknown]
  - Blood pressure decreased [Unknown]
